FAERS Safety Report 18481328 (Version 1)
Quarter: 2020Q4

REPORT INFORMATION
  Report Type: Spontaneous
  Country: US (occurrence: US)
  Receive Date: 20201109
  Receipt Date: 20201109
  Transmission Date: 20210114
  Serious: Yes (Other)
  Sender: FDA-Public Use
  Company Number: US-PURDUE-USA-2020-0174607

PATIENT
  Sex: Male

DRUGS (3)
  1. OXYCODONE HYDROCHLORIDE (SIMILAR TO NDA 22-272) [Suspect]
     Active Substance: OXYCODONE HYDROCHLORIDE
     Indication: HEADACHE
     Dosage: 5-325, 1-4 DAILY, 120 MONTH
     Route: 048
  2. OXYCODONE HYDROCHLORIDE (SIMILAR TO NDA 22-272) [Suspect]
     Active Substance: OXYCODONE HYDROCHLORIDE
     Indication: BACK PAIN
     Dosage: 5-325, 1-2 DAILY, 45 MONTH
     Route: 048
  3. OXYCODONE HYDROCHLORIDE (SIMILAR TO NDA 22-272) [Suspect]
     Active Substance: OXYCODONE HYDROCHLORIDE
     Dosage: 5-325, 1-5 DAILY, 180 MONTH
     Route: 048

REACTIONS (13)
  - Depression [Unknown]
  - Drug dependence [Unknown]
  - Seizure [Unknown]
  - Mental disorder [Unknown]
  - Hemiparesis [Unknown]
  - Cardiac disorder [Unknown]
  - Cerebrovascular accident [Unknown]
  - Tremor [Unknown]
  - Adverse drug reaction [Unknown]
  - Cerebral haemorrhage [Unknown]
  - General physical condition abnormal [Unknown]
  - Cerebral disorder [Unknown]
  - Anxiety [Unknown]

NARRATIVE: CASE EVENT DATE: 201811
